FAERS Safety Report 25250189 (Version 1)
Quarter: 2025Q2

REPORT INFORMATION
  Report Type: Spontaneous
  Country: US (occurrence: US)
  Receive Date: 20250429
  Receipt Date: 20250429
  Transmission Date: 20250716
  Serious: Yes (Other)
  Sender: MYLAN
  Company Number: US-MYLANLABS-2025M1036124

PATIENT
  Age: 61 Year
  Sex: Male

DRUGS (2)
  1. BUDESONIDE [Suspect]
     Active Substance: BUDESONIDE
     Indication: Chronic lymphocytic leukaemia
  2. BUDESONIDE [Suspect]
     Active Substance: BUDESONIDE
     Indication: B-cell small lymphocytic lymphoma

REACTIONS (1)
  - Drug ineffective [Unknown]
